FAERS Safety Report 12095227 (Version 2)
Quarter: 2016Q1

REPORT INFORMATION
  Report Type: Spontaneous
  Country: JP (occurrence: JP)
  Receive Date: 20160219
  Receipt Date: 20160310
  Transmission Date: 20160526
  Serious: Yes (Other)
  Sender: FDA-Public Use
  Company Number: JP-009507513-1602JPN009501

PATIENT
  Age: 76 Year
  Sex: Female

DRUGS (1)
  1. ZETIA [Suspect]
     Active Substance: EZETIMIBE
     Dosage: DAILY DOSE UNKNOWN
     Route: 048

REACTIONS (2)
  - Eyelid ptosis [Unknown]
  - Dark circles under eyes [Unknown]
